FAERS Safety Report 6242727-5 (Version None)
Quarter: 2009Q2

REPORT INFORMATION
  Report Type: 
  Country: None (occurrence: None)
  Receive Date: 20090619
  Receipt Date: 20090619
  Transmission Date: 20091009
  Serious: No
  Sender: FDA-Public Use
  Company Number: None

PATIENT
  Age: 73 Year
  Sex: Female
  Weight: 90.7194 kg

DRUGS (4)
  1. ZOLOFT [Suspect]
  2. SINGULAIR [Suspect]
  3. PREVACID [Suspect]
  4. ADVIL [Suspect]

REACTIONS (3)
  - RASH [None]
  - REACTION TO DRUG EXCIPIENTS [None]
  - SCRATCH [None]
